FAERS Safety Report 23432171 (Version 1)
Quarter: 2024Q1

REPORT INFORMATION
  Report Type: Spontaneous
  Country: US (occurrence: None)
  Receive Date: 20240122
  Receipt Date: 20240122
  Transmission Date: 20240409
  Serious: No
  Sender: FDA-Public Use
  Company Number: None

PATIENT
  Sex: Male

DRUGS (2)
  1. LENALIDOMIDE [Suspect]
     Active Substance: LENALIDOMIDE
     Indication: Plasma cell myeloma
     Dosage: 10MG 1 TIME A DAY ORAL
     Route: 048
     Dates: start: 202309
  2. REVLIMID [Concomitant]

REACTIONS (2)
  - Adverse drug reaction [None]
  - Therapy interrupted [None]
